FAERS Safety Report 6387273-3 (Version None)
Quarter: 2009Q3

REPORT INFORMATION
  Report Type: 
  Country: None (occurrence: None)
  Receive Date: 20090928
  Receipt Date: 20090915
  Transmission Date: 20100115
  Serious: No
  Sender: FDA-Public Use
  Company Number: 2009BI026176

PATIENT
  Age: 69 Year
  Sex: Male

DRUGS (3)
  1. ZEVALIN [Suspect]
     Indication: MANTLE CELL LYMPHOMA RECURRENT
     Dosage: 1X
     Dates: start: 20090811, end: 20090811
  2. RITUXAN [Concomitant]
  3. PREV MEDS [Concomitant]

REACTIONS (4)
  - FATIGUE [None]
  - GENERAL PHYSICAL HEALTH DETERIORATION [None]
  - OEDEMA PERIPHERAL [None]
  - WAIST CIRCUMFERENCE INCREASED [None]
